FAERS Safety Report 8500796-3 (Version None)
Quarter: 2012Q2

REPORT INFORMATION
  Report Type: 
  Country: None (occurrence: None)
  Receive Date: 20120405
  Receipt Date: 20091030
  Transmission Date: 20120825
  Serious: Yes (Other)
  Sender: FDA-Public Use
  Company Number: PHEH2009US09698

PATIENT
  Age: 72 Year
  Sex: Female
  Weight: 56.2 kg

DRUGS (3)
  1. RECLAST [Suspect]
     Indication: OSTEOPOROSIS
     Dosage: 5 MG, INTRAVENOUS
     Route: 042
     Dates: start: 20090717
  2. DILANTIN [Concomitant]
  3. DEPAKOTE [Concomitant]

REACTIONS (2)
  - PYREXIA [None]
  - FEELING ABNORMAL [None]
